FAERS Safety Report 9447531 (Version 2)
Quarter: 2013Q3

REPORT INFORMATION
  Report Type: Spontaneous
  Country: JP (occurrence: JP)
  Receive Date: 20130808
  Receipt Date: 20130905
  Transmission Date: 20140515
  Serious: Yes (Death)
  Sender: FDA-Public Use
  Company Number: JP-ROCHE-1259339

PATIENT
  Sex: Female
  Weight: 49 kg

DRUGS (3)
  1. AVASTIN [Suspect]
     Indication: BREAST CANCER METASTATIC
     Route: 041
     Dates: start: 20130729
  2. TAXOL [Suspect]
     Indication: BREAST CANCER METASTATIC
     Dosage: DOSAGE IS UNCERTAIN.
     Route: 041
     Dates: start: 201210, end: 201301
  3. TAXOL [Suspect]
     Indication: BREAST CANCER METASTATIC
     Route: 041
     Dates: start: 20130729, end: 20130729

REACTIONS (1)
  - Hepatic failure [Fatal]
